FAERS Safety Report 5269626-X (Version None)
Quarter: 2007Q1

REPORT INFORMATION
  Report Type: 
  Country: None (occurrence: None)
  Receive Date: 20070320
  Receipt Date: 20070307
  Transmission Date: 20070707
  Serious: Yes (Death, Hospitalization)
  Sender: FDA-Public Use
  Company Number: HQWYE392503NOV05

PATIENT
  Sex: Female

DRUGS (9)
  1. ENBREL [Suspect]
     Indication: RHEUMATOID ARTHRITIS
     Dosage: UNKNOWN
     Route: 058
     Dates: start: 20050701
  2. METHOTREXATE [Concomitant]
     Indication: IMMUNOSUPPRESSANT DRUG THERAPY
     Dosage: UNKNOWN
     Dates: start: 19950101
  3. HYDROXYCHLOROQUINE SULFATE [Concomitant]
     Indication: ANTIINFLAMMATORY THERAPY
     Dosage: UNKNOWN
     Dates: start: 19950101
  4. INDOMETHACIN [Concomitant]
     Indication: ANALGESIC EFFECT
     Dosage: UNKNOWN
     Dates: start: 19950101
  5. AZATHIOPRINE [Concomitant]
     Indication: IMMUNOSUPPRESSANT DRUG THERAPY
     Dosage: UNKNOWN
     Dates: start: 19980101
  6. CYCLOSPORINE [Concomitant]
     Indication: IMMUNOSUPPRESSANT DRUG THERAPY
     Dosage: UNKNOWN
     Dates: start: 19980101
  7. LEFLUNOMIDE [Concomitant]
     Indication: RHEUMATOID ARTHRITIS
     Dosage: UNKNOWN
     Dates: start: 20000101
  8. PREDNISOLONE [Concomitant]
     Indication: IMMUNOSUPPRESSANT DRUG THERAPY
     Dosage: UNKNOWN
     Dates: start: 19950101
  9. SULFASALAZINE [Concomitant]
     Dosage: UNKNOWN
     Dates: start: 19950101

REACTIONS (6)
  - ARRHYTHMIA [None]
  - CARDIAC VALVE DISEASE [None]
  - CARDIOGENIC SHOCK [None]
  - CEREBRAL ARTERY EMBOLISM [None]
  - HEMIANOPIA HOMONYMOUS [None]
  - HEMIPLEGIA [None]
